FAERS Safety Report 8336225-2 (Version None)
Quarter: 2012Q2

REPORT INFORMATION
  Report Type: 
  Country: None (occurrence: None)
  Receive Date: 20120504
  Receipt Date: 20120502
  Transmission Date: 20120825
  Serious: Yes (Other)
  Sender: FDA-Public Use
  Company Number: US-ACCORD-013360

PATIENT
  Age: 64 Year
  Sex: Female
  Weight: 60 kg

DRUGS (1)
  1. MITOMYCIN [Suspect]
     Indication: BLADDER CANCER
     Dosage: MITOMYCIN 40MG IN 20CC STERILE WATER
     Route: 043
     Dates: start: 20120401

REACTIONS (2)
  - DYSURIA [None]
  - OFF LABEL USE [None]
